FAERS Safety Report 8506480-4 (Version None)
Quarter: 2012Q3

REPORT INFORMATION
  Report Type: 
  Country: None (occurrence: None)
  Receive Date: 20120712
  Receipt Date: 20120703
  Transmission Date: 20120928
  Serious: Yes (Hospitalization)
  Sender: FDA-Public Use
  Company Number: FR-JNJFOC-20120702462

PATIENT
  Age: 73 Year
  Sex: Female

DRUGS (8)
  1. DAPSONE [Concomitant]
     Route: 065
  2. POTASSIUM CHLORIDE [Concomitant]
     Route: 065
  3. ASPIRIN [Concomitant]
     Route: 065
  4. REMICADE [Suspect]
     Indication: POLYCHONDRITIS
     Route: 042
     Dates: start: 20120208, end: 20120417
  5. OMEPRAZOLE [Concomitant]
     Route: 065
  6. PLAQUENIL [Concomitant]
     Route: 065
  7. ATORVASTATIN [Concomitant]
     Route: 065
  8. PREDNISONE TAB [Concomitant]
     Route: 065

REACTIONS (1)
  - SQUAMOUS CELL CARCINOMA [None]
